FAERS Safety Report 18446759 (Version 1)
Quarter: 2020Q4

REPORT INFORMATION
  Report Type: Spontaneous
  Country: NL (occurrence: ES)
  Receive Date: 20201030
  Receipt Date: 20201030
  Transmission Date: 20210114
  Serious: Yes (Other)
  Sender: FDA-Public Use
  Company Number: ES-FRESENIUS KABI-FK202011312

PATIENT
  Age: 46 Year
  Sex: Female
  Weight: 56.1 kg

DRUGS (6)
  1. METFORMIN [Concomitant]
     Active Substance: METFORMIN HYDROCHLORIDE
     Indication: PRODUCT USED FOR UNKNOWN INDICATION
     Dosage: METFORMIN 850 MG 50 TABLETS
     Route: 065
  2. PANTOPRAZOLE SODIUM SESQUIHYDRATE [Concomitant]
     Active Substance: PANTOPRAZOLE SODIUM
     Indication: PRODUCT USED FOR UNKNOWN INDICATION
     Dosage: PANTOPRAZOLE 20 MG 28 TABLETS
     Route: 065
  3. FENTANYL. [Concomitant]
     Active Substance: FENTANYL
     Indication: PRODUCT USED FOR UNKNOWN INDICATION
     Dosage: FENTANILO MATRIX RATIOPHARM 25 MICROGRAMS / HOUR TRANSDERMAL PATCHES EFG
     Route: 065
  4. DOMPERIDONE [Concomitant]
     Active Substance: DOMPERIDONE
     Indication: PRODUCT USED FOR UNKNOWN INDICATION
     Dosage: MOTILIUM 10 MG FILM-COATED TABLETS, 30 TABLETS
     Route: 065
  5. LORAZEPAM. [Concomitant]
     Active Substance: LORAZEPAM
     Indication: PRODUCT USED FOR UNKNOWN INDICATION
     Dosage: ORFIDAL 1 MG TABLETS, 50 TABLETS
     Route: 065
  6. OXALIPLATIN (MANUFACTURER UNKNOWN) [Suspect]
     Active Substance: OXALIPLATIN
     Indication: GASTRIC CANCER
     Dosage: OXALIPLATIN (7351A)?130 MG/M2 EVERY 3 WEEKS
     Route: 042
     Dates: start: 20200901, end: 20200922

REACTIONS (3)
  - Dysaesthesia pharynx [Recovered/Resolved]
  - Monoparesis [Recovered/Resolved]
  - Paraparesis [Recovered/Resolved]

NARRATIVE: CASE EVENT DATE: 20200922
